FAERS Safety Report 10626784 (Version 2)
Quarter: 2015Q1

REPORT INFORMATION
  Report Type: Spontaneous
  Country: US (occurrence: US)
  Receive Date: 20141204
  Receipt Date: 20150109
  Transmission Date: 20150720
  Serious: No
  Sender: FDA-Public Use
  Company Number: US-BAXTER-2014BAX070756

PATIENT
  Sex: Male

DRUGS (2)
  1. 0.9% SODIUM CHLORIDE [Suspect]
     Active Substance: SODIUM CHLORIDE
     Indication: INFUSION
     Route: 042
     Dates: start: 20141120
  2. 0.9% SODIUM CHLORIDE INJECTION [Suspect]
     Active Substance: SODIUM CHLORIDE
     Indication: INFUSION
     Route: 042
     Dates: start: 20141120

REACTIONS (2)
  - No adverse event [Recovered/Resolved]
  - Accidental exposure to product [Unknown]
